FAERS Safety Report 16763236 (Version 1)
Quarter: 2019Q3

REPORT INFORMATION
  Report Type: Spontaneous
  Country: US (occurrence: US)
  Receive Date: 20190711
  Receipt Date: 20190711
  Transmission Date: 20191005
  Serious: Yes (Life-Threatening, Hospitalization, Other)
  Sender: FDA-Public Use
  Company Number: None

PATIENT
  Sex: Female
  Weight: 63.96 kg

DRUGS (3)
  1. LOSARTAN-HCTZ 100MG 25 STRENGTH [Suspect]
     Active Substance: HYDROCHLOROTHIAZIDE\LOSARTAN
     Indication: PRODUCT USED FOR UNKNOWN INDICATION
  2. LOSARTAN 100MG 25 STRENGTH [Suspect]
     Active Substance: LOSARTAN
     Indication: DRUG THERAPY
  3. LOSARTAN-HCTZ 100MG 25 STRENGTH [Suspect]
     Active Substance: HYDROCHLOROTHIAZIDE\LOSARTAN
     Indication: WEIGHT DECREASED

REACTIONS (8)
  - Gastrointestinal stromal tumour [None]
  - Weight decreased [None]
  - Renal neoplasm [None]
  - Nausea [None]
  - Renal cell carcinoma [None]
  - Abdominal distension [None]
  - Pain [None]
  - Gastric polyps [None]
